FAERS Safety Report 13688120 (Version 4)
Quarter: 2017Q4

REPORT INFORMATION
  Report Type: Spontaneous
  Country: US (occurrence: US)
  Receive Date: 20170626
  Receipt Date: 20171124
  Transmission Date: 20180320
  Serious: Yes (Hospitalization, Other)
  Sender: FDA-Public Use
  Company Number: US-PFIZER INC-2017273631

PATIENT
  Age: 64 Year
  Sex: Male
  Weight: 125 kg

DRUGS (15)
  1. LYRICA [Suspect]
     Active Substance: PREGABALIN
     Indication: NEUROPATHY PERIPHERAL
     Dosage: 150 MG, 3X/DAY
     Route: 048
     Dates: start: 2006
  2. ASPIRIN. [Concomitant]
     Active Substance: ASPIRIN
     Dosage: UNK
  3. TRICOR [Concomitant]
     Active Substance: FENOFIBRATE
     Dosage: UNK
  4. ALEVE [Concomitant]
     Active Substance: NAPROXEN SODIUM
     Dosage: 2 DF, DAILY
  5. VICODIN [Concomitant]
     Active Substance: ACETAMINOPHEN\HYDROCODONE BITARTRATE
     Indication: PAIN
     Dosage: UNK UNK, AS NEEDED
  6. OXYGEN. [Concomitant]
     Active Substance: OXYGEN
     Dosage: UNK (ABOUT 12 HOURS A DAY)
  7. CLOPIDOGREL [Concomitant]
     Active Substance: CLOPIDOGREL BISULFATE
     Dosage: UNK
  8. PATADAY [Concomitant]
     Active Substance: OLOPATADINE HYDROCHLORIDE
     Dosage: UNK (DROPS IN EYES/EVERY 3 OR SO MONTHS)
  9. XANAX [Concomitant]
     Active Substance: ALPRAZOLAM
     Indication: ANXIETY
     Dosage: 0.5 MG, 3X/DAY
     Dates: start: 1991
  10. NITROGLYCERIN. [Concomitant]
     Active Substance: NITROGLYCERIN
     Dosage: UNK
  11. ATORVASTATIN [Concomitant]
     Active Substance: ATORVASTATIN
     Dosage: UNK
  12. METOPROLOL TARTRATE. [Concomitant]
     Active Substance: METOPROLOL TARTRATE
     Dosage: UNK
  13. METFORMIN HCL [Concomitant]
     Active Substance: METFORMIN HYDROCHLORIDE
     Dosage: UNK
  14. ESCITALOPRAM [Concomitant]
     Active Substance: ESCITALOPRAM OXALATE
     Dosage: 10 MG, DAILY(A DAY)
  15. LEVOTHYROXINE. [Concomitant]
     Active Substance: LEVOTHYROXINE
     Indication: HYPOTHYROIDISM
     Dosage: 50 UG, 1X/DAY

REACTIONS (23)
  - Sepsis [Recovered/Resolved]
  - Vomiting [Unknown]
  - Systemic inflammatory response syndrome [Recovered/Resolved]
  - Dizziness [Unknown]
  - Intentional product use issue [Unknown]
  - Anxiety [Unknown]
  - Condition aggravated [Unknown]
  - Abdominal discomfort [Unknown]
  - Disturbance in attention [Unknown]
  - Malaise [Unknown]
  - Fatigue [Unknown]
  - Urinary tract infection [Recovered/Resolved]
  - Asthenia [Unknown]
  - Swelling face [Unknown]
  - Peripheral swelling [Unknown]
  - Hypoacusis [Not Recovered/Not Resolved]
  - Confusional state [Unknown]
  - Vertigo [Recovered/Resolved]
  - Impaired driving ability [Unknown]
  - Weight increased [Unknown]
  - Gait disturbance [Unknown]
  - Somnolence [Unknown]
  - Fall [Unknown]

NARRATIVE: CASE EVENT DATE: 2012
